FAERS Safety Report 6069617-5 (Version None)
Quarter: 2009Q1

REPORT INFORMATION
  Report Type: 
  Country: None (occurrence: None)
  Receive Date: 20090209
  Receipt Date: 20090129
  Transmission Date: 20090719
  Serious: Yes (Hospitalization)
  Sender: FDA-Public Use
  Company Number: GR-BRISTOL-MYERS SQUIBB COMPANY-14474910

PATIENT
  Age: 53 Year
  Sex: Female

DRUGS (3)
  1. GLUCOPHAGE [Suspect]
     Indication: TYPE 2 DIABETES MELLITUS
     Dosage: TOTAL -1700 MG.AFTER LUNCH AND DINNER
     Route: 048
  2. THYROHORMONE [Concomitant]
     Dosage: 1 DOSAGE FORM=HALF OF 100MICROGRAM IN THE MORNING
  3. ACTOS [Concomitant]
     Indication: TYPE 2 DIABETES MELLITUS

REACTIONS (2)
  - BLOOD TEST ABNORMAL [None]
  - HYPERSENSITIVITY [None]
